FAERS Safety Report 19212779 (Version 1)
Quarter: 2021Q2

REPORT INFORMATION
  Report Type: Spontaneous
  Country: RU (occurrence: RU)
  Receive Date: 20210504
  Receipt Date: 20210504
  Transmission Date: 20210717
  Serious: Yes (Life-Threatening, Hospitalization)
  Sender: FDA-Public Use
  Company Number: NVSC2021RU099465

PATIENT
  Age: 3 Year
  Sex: Female
  Weight: 20 kg

DRUGS (5)
  1. METHOTREXAT ^EBEWE^ [Suspect]
     Active Substance: METHOTREXATE
     Indication: ACUTE LEUKAEMIA
     Dosage: 20 MG
     Route: 030
     Dates: start: 20201029
  2. VERO ASPARAGINASE [Concomitant]
     Indication: ACUTE LEUKAEMIA
     Dosage: UNK (6800 UNITS)
     Route: 030
     Dates: start: 20201028
  3. DAUNORUBICIN LENS [Concomitant]
     Active Substance: DAUNORUBICIN HYDROCHLORIDE
     Indication: ACUTE LEUKAEMIA
     Dosage: 20 MG
     Route: 042
     Dates: start: 20201029
  4. MERCAPTOPURINE. [Concomitant]
     Active Substance: MERCAPTOPURINE
     Indication: ACUTE LEUKAEMIA
     Dosage: 30 MG
     Route: 048
     Dates: start: 20201028
  5. ONCASPAR [Concomitant]
     Active Substance: PEGASPARGASE
     Indication: ACUTE LEUKAEMIA
     Dosage: UNK (700 UNITS)
     Route: 042
     Dates: start: 20200920

REACTIONS (5)
  - Altered state of consciousness [Recovering/Resolving]
  - Vomiting [Recovering/Resolving]
  - Oxygen saturation [Recovering/Resolving]
  - Urinary incontinence [Recovering/Resolving]
  - Seizure [Recovering/Resolving]

NARRATIVE: CASE EVENT DATE: 20210414
